FAERS Safety Report 10639861 (Version 2)
Quarter: 2014Q4

REPORT INFORMATION
  Report Type: Report from Study
  Country: US (occurrence: US)
  Receive Date: 20141209
  Receipt Date: 20141209
  Transmission Date: 20150529
  Serious: Yes (Other)
  Sender: FDA-Public Use
  Company Number: US-BAYER-2014-160039

PATIENT
  Age: 62 Year
  Sex: Female

DRUGS (3)
  1. STIVARGA [Suspect]
     Active Substance: REGORAFENIB
     Indication: COLORECTAL CANCER STAGE IV
     Dosage: 160 MG, DAILY DOSE
     Route: 048
     Dates: start: 20141021, end: 20141104
  2. STIVARGA [Suspect]
     Active Substance: REGORAFENIB
     Indication: METASTASES TO LUNG
  3. STIVARGA [Suspect]
     Active Substance: REGORAFENIB
     Indication: METASTASES TO LIVER

REACTIONS (13)
  - Stomatitis [None]
  - Fatigue [None]
  - Rash [None]
  - Transfusion [None]
  - Biliary colic [None]
  - Dysphonia [None]
  - Diarrhoea [None]
  - Eye infection [None]
  - Nausea [None]
  - Platelet count decreased [None]
  - Weight decreased [None]
  - Palmar-plantar erythrodysaesthesia syndrome [None]
  - Vomiting [None]

NARRATIVE: CASE EVENT DATE: 201410
